FAERS Safety Report 9258669 (Version 1)
Quarter: 2013Q1

REPORT INFORMATION
  Report Type: Spontaneous
  Country: US (occurrence: None)
  Receive Date: 20121212
  Receipt Date: 20121212
  Transmission Date: 20140127
  Serious: No
  Sender: FDA-Public Use
  Company Number: 2011SP051785

PATIENT
  Age: 56 Year
  Sex: Male
  Weight: 60.3 kg

DRUGS (5)
  1. PEG-INTRON [Suspect]
     Dosage: 150 MCG/0.5ML,
     Route: 058
  2. VICTRELIS [Suspect]
     Route: 048
  3. RIBAPAK (RIBAVIRIN) [Concomitant]
  4. BENADRYL (DIPHENHYDRAMINE HYDROCHLORIDE) [Concomitant]
  5. TYLENOL (ACETAMINOPHEN) [Concomitant]

REACTIONS (12)
  - Drug ineffective [None]
  - Increased upper airway secretion [None]
  - Furuncle [None]
  - Dermatitis allergic [None]
  - Muscle spasms [None]
  - Dental caries [None]
  - Dysgeusia [None]
  - Irritability [None]
  - Platelet count decreased [None]
  - Abdominal pain lower [None]
  - Cough [None]
  - Dehydration [None]
